FAERS Safety Report 8112474-3 (Version None)
Quarter: 2011Q4

REPORT INFORMATION
  Report Type: 
  Country: None (occurrence: None)
  Receive Date: 20111227
  Receipt Date: 20111111
  Transmission Date: 20120403
  Serious: Yes (Other)
  Sender: FDA-Public Use
  Company Number: PHEH2011US008641

PATIENT
  Age: 36 Year
  Sex: Female
  Weight: 84.1 kg

DRUGS (10)
  1. PROZAC [Concomitant]
  2. NEURONTIN [Concomitant]
  3. IBUPROFEN [Concomitant]
  4. SOMA [Concomitant]
  5. GILENYA [Suspect]
     Indication: RELAPSING-REMITTING MULTIPLE SCLEROSIS
     Dosage: 0.5 MG, QD, ORAL
     Route: 048
     Dates: start: 20110311
  6. VITAMIN D [Concomitant]
  7. ZANAFLEX [Concomitant]
  8. BACLOFEN [Suspect]
     Indication: MUSCLE SPASTICITY
     Dosage: 20 MG, TID, ORAL
     Route: 048
     Dates: start: 20110927
  9. REMERON [Concomitant]
  10. VITAMIN D [Concomitant]

REACTIONS (5)
  - ALANINE AMINOTRANSFERASE INCREASED [None]
  - BLOOD ALKALINE PHOSPHATASE INCREASED [None]
  - ASPARTATE AMINOTRANSFERASE INCREASED [None]
  - LIVER FUNCTION TEST ABNORMAL [None]
  - BLOOD LACTATE DEHYDROGENASE INCREASED [None]
